FAERS Safety Report 5013583-8 (Version None)
Quarter: 2006Q2

REPORT INFORMATION
  Report Type: 
  Country: None (occurrence: None)
  Receive Date: 20060525
  Receipt Date: 20060518
  Transmission Date: 20061013
  Serious: Yes (Hospitalization)
  Sender: FDA-Public Use
  Company Number: HQWYE411619MAY06

PATIENT
  Age: 35 Year
  Sex: Female
  Weight: 53.57 kg

DRUGS (1)
  1. RAPAMUNE [Suspect]
     Indication: PROPHYLAXIS AGAINST TRANSPLANT REJECTION
     Dosage: 14 MG 1X PER 1 DAY
     Dates: start: 20060425, end: 20060511

REACTIONS (1)
  - KIDNEY TRANSPLANT REJECTION [None]
